FAERS Safety Report 8452328-6 (Version None)
Quarter: 2012Q2

REPORT INFORMATION
  Report Type: 
  Country: None (occurrence: None)
  Receive Date: 20120620
  Receipt Date: 20120608
  Transmission Date: 20120825
  Serious: Yes (Other)
  Sender: FDA-Public Use
  Company Number: US-ELI_LILLY_AND_COMPANY-US201110002543

PATIENT
  Sex: Female

DRUGS (3)
  1. ENBREL [Concomitant]
  2. FORTEO [Suspect]
     Indication: OSTEOPOROSIS
     Dosage: 20 UG, QD
     Route: 065
     Dates: start: 20110901
  3. FORTEO [Suspect]
     Dosage: 20 UG, QD

REACTIONS (11)
  - PELVIC FRACTURE [None]
  - RASH [None]
  - PRURITUS [None]
  - ARTHRITIS [None]
  - PAIN [None]
  - RIB FRACTURE [None]
  - DRUG INTERACTION [None]
  - FURUNCLE [None]
  - FEELING ABNORMAL [None]
  - APATHY [None]
  - HEADACHE [None]
